FAERS Safety Report 7080107-3 (Version None)
Quarter: 2010Q4

REPORT INFORMATION
  Report Type: 
  Country: None (occurrence: None)
  Receive Date: 20101102
  Receipt Date: 20101022
  Transmission Date: 20110411
  Serious: Yes (Other)
  Sender: FDA-Public Use
  Company Number: US-AMGEN-USASP2010001891

PATIENT

DRUGS (8)
  1. PROLIA [Suspect]
     Indication: OSTEOPOROSIS
     Dosage: 60 MG, Q6MO
  2. DIOVAN [Concomitant]
  3. VITAMIN D [Concomitant]
  4. HYDROCHLOROTHIAZIDE [Concomitant]
  5. POTASSIUM CHLORIDE [Concomitant]
  6. OMEPRAZOLE [Concomitant]
  7. TESTOSTERONE [Concomitant]
  8. LEVOTHYROXINE [Concomitant]

REACTIONS (2)
  - ARTHRALGIA [None]
  - PAIN IN JAW [None]
